FAERS Safety Report 7354371-7 (Version None)
Quarter: 2011Q1

REPORT INFORMATION
  Report Type: 
  Country: None (occurrence: None)
  Receive Date: 20110316
  Receipt Date: 20110309
  Transmission Date: 20110831
  Serious: Yes (Hospitalization, Other)
  Sender: FDA-Public Use
  Company Number: US-JNJFOC-20100706285

PATIENT
  Sex: Female

DRUGS (2)
  1. LEVAQUIN [Suspect]
     Indication: BRONCHITIS
     Route: 048
  2. PREDNISONE [Suspect]
     Indication: BRONCHITIS
     Route: 065

REACTIONS (3)
  - PERIARTHRITIS [None]
  - ROTATOR CUFF SYNDROME [None]
  - BURSITIS [None]
